FAERS Safety Report 4965818-5 (Version None)
Quarter: 2006Q2

REPORT INFORMATION
  Report Type: 
  Country: None (occurrence: None)
  Receive Date: 20060407
  Receipt Date: 20060328
  Transmission Date: 20061013
  Serious: Yes (Death, Hospitalization)
  Sender: FDA-Public Use
  Company Number: US-JNJFOC-20060204949

PATIENT
  Sex: Male
  Weight: 61.24 kg

DRUGS (7)
  1. LEUSTATIN [Suspect]
     Indication: WALDENSTROM'S MACROGLOBULINAEMIA
  2. POTASSIUM CHLORIDE [Concomitant]
  3. NEXIUM [Concomitant]
  4. LISINOPRIL [Concomitant]
  5. TOPROL-XL [Concomitant]
  6. LASIX [Concomitant]
  7. METOLAZONE [Concomitant]

REACTIONS (6)
  - BACTERIAL SEPSIS [None]
  - GASTROINTESTINAL HAEMORRHAGE [None]
  - NEUTROPENIC SEPSIS [None]
  - PANCYTOPENIA [None]
  - RENAL FAILURE ACUTE [None]
  - RESPIRATORY FAILURE [None]
